FAERS Safety Report 11411420 (Version 1)
Quarter: 2015Q3

REPORT INFORMATION
  Report Type: Spontaneous
  Country: US (occurrence: US)
  Receive Date: 20150821
  Receipt Date: 20150821
  Transmission Date: 20151125
  Serious: No
  Sender: FDA-Public Use
  Company Number: US-ELI_LILLY_AND_COMPANY-US201007002065

PATIENT
  Age: 55 Year
  Sex: Male

DRUGS (1)
  1. HUMULIN U [Suspect]
     Active Substance: INSULIN HUMAN
     Indication: DIABETES MELLITUS

REACTIONS (3)
  - Feeling abnormal [Recovered/Resolved]
  - Inappropriate schedule of drug administration [Recovered/Resolved]
  - Asthenia [Recovered/Resolved]
